FAERS Safety Report 25219352 (Version 1)
Quarter: 2025Q2

REPORT INFORMATION
  Report Type: Spontaneous
  Country: FR (occurrence: FR)
  Receive Date: 20250421
  Receipt Date: 20250421
  Transmission Date: 20250716
  Serious: Yes (Hospitalization)
  Sender: MYLAN
  Company Number: None

PATIENT
  Age: 52 Year
  Sex: Male
  Weight: 108 kg

DRUGS (16)
  1. PREDNISONE [Suspect]
     Active Substance: PREDNISONE
     Indication: Pain
     Dosage: 40 MILLIGRAM, QD
     Dates: start: 20240130, end: 20240218
  2. PREDNISONE [Suspect]
     Active Substance: PREDNISONE
     Dosage: 20 MILLIGRAM, QD
     Dates: start: 20240428, end: 20240503
  3. PREDNISONE [Suspect]
     Active Substance: PREDNISONE
     Dosage: 10 MILLIGRAM, QD
     Dates: start: 20240503, end: 20240902
  4. PREDNISONE [Suspect]
     Active Substance: PREDNISONE
     Dosage: 7.5 MILLIGRAM, QD
     Dates: start: 20240903, end: 20250125
  5. CABOMETYX [Suspect]
     Active Substance: CABOZANTINIB S-MALATE
     Indication: Clear cell renal cell carcinoma
     Dosage: 1 DOSAGE FORM, QD
     Dates: start: 20240219, end: 20240427
  6. CABOMETYX [Suspect]
     Active Substance: CABOZANTINIB S-MALATE
     Dosage: 1 DOSAGE FORM, QD
     Dates: start: 20240504, end: 20240511
  7. CABOMETYX [Suspect]
     Active Substance: CABOZANTINIB S-MALATE
     Dosage: 1 DOSAGE FORM, QD
     Dates: start: 20240529, end: 20240820
  8. CABOMETYX [Suspect]
     Active Substance: CABOZANTINIB S-MALATE
     Dosage: 1 DOSAGE FORM, QD
     Dates: start: 20250103, end: 20250228
  9. MEDROL [Suspect]
     Active Substance: METHYLPREDNISOLONE
     Indication: Pain
     Dosage: 80 MILLIGRAM, QD
     Dates: start: 20240219, end: 20240304
  10. MEDROL [Suspect]
     Active Substance: METHYLPREDNISOLONE
     Dosage: 120 MILLIGRAM, QD
     Dates: start: 20240305, end: 20240317
  11. MEDROL [Suspect]
     Active Substance: METHYLPREDNISOLONE
     Dosage: 80 MILLIGRAM, QD
     Dates: start: 20240318, end: 20240403
  12. MEDROL [Suspect]
     Active Substance: METHYLPREDNISOLONE
     Dosage: 40 MILLIGRAM, QD
     Dates: start: 20240404, end: 20240827
  13. OPDIVO [Concomitant]
     Active Substance: NIVOLUMAB
     Dosage: 480 MILLIGRAM, Q28D (4 WEEK)
     Dates: start: 20240219, end: 20240725
  14. RAMIPRIL [Concomitant]
     Active Substance: RAMIPRIL
     Dosage: 5 MILLIGRAM, QD
  15. LERCANIDIPINE HYDROCHLORIDE [Concomitant]
     Active Substance: LERCANIDIPINE HYDROCHLORIDE
     Dosage: 10 MILLIGRAM, QD
  16. ATORVASTATIN [Concomitant]
     Active Substance: ATORVASTATIN
     Dosage: 80 MILLIGRAM, QD

REACTIONS (2)
  - Skin ulcer [Recovered/Resolved]
  - Impaired healing [Recovered/Resolved]

NARRATIVE: CASE EVENT DATE: 20240501
